FAERS Safety Report 12433431 (Version 1)
Quarter: 2016Q2

REPORT INFORMATION
  Report Type: Spontaneous
  Country: CN (occurrence: CN)
  Receive Date: 20160603
  Receipt Date: 20160603
  Transmission Date: 20160815
  Serious: Yes (Other)
  Sender: FDA-Public Use
  Company Number: PHHY2016CN075016

PATIENT
  Age: 51 Year
  Sex: Female

DRUGS (1)
  1. TELBIVUDINE [Suspect]
     Active Substance: TELBIVUDINE
     Indication: HEPATITIS CHRONIC ACTIVE
     Route: 065

REACTIONS (3)
  - Glomerular filtration rate decreased [Recovered/Resolved]
  - Renal impairment [Unknown]
  - Proteinuria [Recovered/Resolved]
